FAERS Safety Report 8684462 (Version 4)
Quarter: 2012Q4

REPORT INFORMATION
  Report Type: 
  Country: GB (occurrence: GB)
  Receive Date: 20120726
  Receipt Date: 20121008
  Transmission Date: 20130627
  Serious: Yes (Life-Threatening, Hospitalization, Disabling, Other)
  Sender: FDA-Public Use
  Company Number: PHFR2012GB004145

PATIENT
  Age: 85 Year
  Sex: Female

DRUGS (15)
  1. CLOZARIL [Suspect]
     Indication: SCHIZOPHRENIA
     Route: 048
     Dates: start: 20030222
  2. CLOZARIL [Suspect]
     Dosage: 112.5 mg daily
     Route: 048
  3. SYMBICORT [Concomitant]
     Indication: CHRONIC OBSTRUCTIVE PULMONARY DISEASE
     Dosage: 2 DF, BID
  4. NOTROPIUM [Concomitant]
     Dosage: 18 ug, UNK
  5. ALENDRONATE SODIUM [Concomitant]
     Dosage: 70 mg, QW
     Route: 048
  6. LATANOPROST [Concomitant]
     Indication: GLAUCOMA
     Route: 061
  7. CITALOPRAM [Concomitant]
     Dosage: 30 mg daily
     Route: 048
  8. ZOPICLONE [Concomitant]
     Dosage: 7.5 g, Nocte
     Route: 048
  9. ASPIRINE [Concomitant]
     Dosage: 75 mg daily
     Route: 048
  10. OMEPRAZOLE [Concomitant]
     Dosage: 20 mg, UNK
  11. BUMETANIDE [Concomitant]
     Indication: OEDEMA
     Dosage: 1 mg
  12. BUMETANIDE [Concomitant]
     Dosage: 0.5 mg BID
     Route: 048
  13. FERROUS SULFATE [Concomitant]
     Indication: ANAEMIA
     Dosage: 200 mg TID
     Route: 048
  14. SALBUTAMOL [Concomitant]
     Indication: CHRONIC OBSTRUCTIVE PULMONARY DISEASE
     Dosage: 2 DF, QID
  15. CARBOCISTEINE [Concomitant]
     Indication: CHRONIC OBSTRUCTIVE PULMONARY DISEASE
     Dosage: 375 mg tds
     Route: 048

REACTIONS (4)
  - Pneumonia [Recovered/Resolved with Sequelae]
  - Neutrophil count increased [Recovered/Resolved]
  - White blood cell count increased [Recovered/Resolved]
  - C-reactive protein increased [Recovered/Resolved]
